FAERS Safety Report 10186090 (Version 1)
Quarter: 2014Q2

REPORT INFORMATION
  Report Type: Spontaneous
  Country: US (occurrence: US)
  Receive Date: 20140521
  Receipt Date: 20140521
  Transmission Date: 20141212
  Serious: No
  Sender: FDA-Public Use
  Company Number: US-BAYER-2014-073035

PATIENT
  Sex: Female

DRUGS (3)
  1. YAZ [Suspect]
     Indication: CONTRACEPTION
     Dosage: UNK
     Route: 048
  2. SPRINTEC [Suspect]
     Dosage: UNK
     Dates: start: 2009, end: 2009
  3. SPRINTEC [Suspect]
     Dosage: UNK
     Dates: end: 201405

REACTIONS (4)
  - Abnormal behaviour [None]
  - Hormone level abnormal [None]
  - Depression [None]
  - Libido decreased [None]
